FAERS Safety Report 7735622-3 (Version None)
Quarter: 2011Q3

REPORT INFORMATION
  Report Type: 
  Country: None (occurrence: None)
  Receive Date: 20110907
  Receipt Date: 20110826
  Transmission Date: 20111222
  Serious: Yes (Hospitalization)
  Sender: FDA-Public Use
  Company Number: US-RB-031879-11

PATIENT
  Sex: Female

DRUGS (1)
  1. SUBOXONE [Suspect]
     Indication: DRUG DEPENDENCE
     Route: 060
     Dates: start: 20110819, end: 20110825

REACTIONS (4)
  - CONDITION AGGRAVATED [None]
  - WRONG TECHNIQUE IN DRUG USAGE PROCESS [None]
  - GALLBLADDER DISORDER [None]
  - PAIN [None]
